FAERS Safety Report 8721704 (Version 2)
Quarter: 2012Q4

REPORT INFORMATION
  Report Type: 
  Country: JP (occurrence: JP)
  Receive Date: 20120814
  Receipt Date: 20120905
  Transmission Date: 20130627
  Serious: Yes (Other)
  Sender: FDA-Public Use
  Company Number: JP-RANBAXY-2012RR-58800

PATIENT
  Age: 62 Year
  Sex: Male

DRUGS (1)
  1. IBUPROFEN [Suspect]
     Indication: HEADACHE
     Dosage: 400 mg daily
     Route: 048

REACTIONS (2)
  - Extranodal marginal zone B-cell lymphoma (MALT type) [Recovering/Resolving]
  - Gastrointestinal disorder [Recovered/Resolved]
